FAERS Safety Report 10191259 (Version 1)
Quarter: 2014Q2

REPORT INFORMATION
  Report Type: Spontaneous
  Country: US (occurrence: US)
  Receive Date: 20140523
  Receipt Date: 20140523
  Transmission Date: 20141212
  Serious: Yes (Other)
  Sender: FDA-Public Use
  Company Number: CHPA2014US006941

PATIENT
  Age: 77 Year
  Sex: Female

DRUGS (2)
  1. GAS-X ULTRA STRENGTH [Suspect]
     Indication: FLATULENCE
     Dosage: 2 DF, MORE THAN ONCE A DAY
     Route: 048
  2. GAS-X EXTRA STRENGTH SOFTGELS [Suspect]
     Indication: FLATULENCE

REACTIONS (2)
  - Renal mass [Recovered/Resolved]
  - Incorrect dose administered [Unknown]
